FAERS Safety Report 5896328-9 (Version None)
Quarter: 2008Q3

REPORT INFORMATION
  Report Type: 
  Country: None (occurrence: None)
  Receive Date: 20080923
  Receipt Date: 20080908
  Transmission Date: 20090109
  Serious: Yes (Death, Hospitalization)
  Sender: FDA-Public Use
  Company Number: KADN20080344

PATIENT
  Age: 50 Year
  Sex: Male

DRUGS (2)
  1. MORPHINE [Suspect]
     Dosage: UNKNOWN, UNKNOWN, ORAL
     Route: 048
     Dates: end: 20050101
  2. HYDROCODONE BITARTRATE [Suspect]
     Dosage: UNKNOWN, UNKNOWN, ORAL
     Route: 048
     Dates: end: 20050101

REACTIONS (9)
  - ACIDOSIS [None]
  - ALANINE AMINOTRANSFERASE INCREASED [None]
  - ASPARTATE AMINOTRANSFERASE INCREASED [None]
  - COMPLETED SUICIDE [None]
  - ELECTROCARDIOGRAM QT PROLONGED [None]
  - HYPOTENSION [None]
  - RENAL FAILURE [None]
  - RESPIRATORY FAILURE [None]
  - UNRESPONSIVE TO STIMULI [None]
